FAERS Safety Report 5078218-7 (Version None)
Quarter: 2006Q3

REPORT INFORMATION
  Report Type: 
  Country: None (occurrence: None)
  Receive Date: 20060808
  Receipt Date: 20060720
  Transmission Date: 20061208
  Serious: Yes (Other)
  Sender: FDA-Public Use
  Company Number: IT200607004274

PATIENT
  Age: 65 Year
  Sex: Male

DRUGS (5)
  1. GEMCITABINE [Suspect]
     Indication: RENAL CANCER METASTATIC
     Dosage: 900 MG/M2, OTHER, INTRAVENOUS
     Route: 042
  2. DEXAMETHASONE TAB [Concomitant]
  3. METHOTREXATE [Concomitant]
  4. BLEOMYCIN [Concomitant]
  5. VINORELBINE TARTRATE [Concomitant]

REACTIONS (8)
  - ERYSIPELOID [None]
  - ERYTHEMA [None]
  - MUSCULOSKELETAL PAIN [None]
  - OEDEMA [None]
  - PAIN [None]
  - PRURITUS [None]
  - SKIN INFECTION [None]
  - SKIN TOXICITY [None]
